FAERS Safety Report 12429445 (Version 2)
Quarter: 2016Q2

REPORT INFORMATION
  Report Type: Spontaneous
  Country: FR (occurrence: FR)
  Receive Date: 20160602
  Receipt Date: 20160630
  Transmission Date: 20160815
  Serious: Yes (Hospitalization)
  Sender: FDA-Public Use
  Company Number: FR-JNJFOC-20160523997

PATIENT
  Age: 58 Year
  Sex: Male

DRUGS (13)
  1. CRESTOR [Concomitant]
     Active Substance: ROSUVASTATIN CALCIUM
     Route: 065
  2. IMOVANE [Concomitant]
     Active Substance: ZOPICLONE
     Route: 065
  3. LYRICA [Concomitant]
     Active Substance: PREGABALIN
     Route: 065
  4. PROCORALAN [Concomitant]
     Active Substance: IVABRADINE
     Route: 065
  5. DEROXAT [Concomitant]
     Active Substance: PAROXETINE HYDROCHLORIDE
     Route: 065
  6. YONDELIS [Suspect]
     Active Substance: TRABECTEDIN
     Indication: LIPOSARCOMA
     Route: 042
     Dates: start: 20160309, end: 20160330
  7. ALPRAZOLAM. [Concomitant]
     Active Substance: ALPRAZOLAM
     Route: 065
  8. CREON [Concomitant]
     Active Substance: PANCRELIPASE AMYLASE\PANCRELIPASE LIPASE\PANCRELIPASE PROTEASE
     Route: 065
  9. YONDELIS [Suspect]
     Active Substance: TRABECTEDIN
     Indication: LIPOSARCOMA
     Route: 042
     Dates: start: 20160420, end: 20160420
  10. KARDEGIC [Concomitant]
     Active Substance: ASPIRIN LYSINE
     Route: 065
  11. PANTOPRAZOLE [Concomitant]
     Active Substance: PANTOPRAZOLE SODIUM
     Route: 065
  12. KENZEN [Concomitant]
     Active Substance: CANDESARTAN
     Route: 065
  13. EZETROL [Concomitant]
     Active Substance: EZETIMIBE
     Route: 065

REACTIONS (5)
  - Acute kidney injury [Not Recovered/Not Resolved]
  - Thrombocytopenia [Recovering/Resolving]
  - Hepatic enzyme increased [Recovering/Resolving]
  - Leukopenia [Recovered/Resolved]
  - Rhabdomyolysis [Recovered/Resolved with Sequelae]

NARRATIVE: CASE EVENT DATE: 20160503
